FAERS Safety Report 10057032 (Version 1)
Quarter: 2014Q2

REPORT INFORMATION
  Report Type: Spontaneous
  Country: US (occurrence: US)
  Receive Date: 20140403
  Receipt Date: 20140403
  Transmission Date: 20141212
  Serious: Yes (Hospitalization)
  Sender: FDA-Public Use
  Company Number: US-BANPHARM-20142503

PATIENT
  Age: 16 Year
  Sex: Female

DRUGS (1)
  1. IBUPROFEN UNKNOWN PRODUCT [Suspect]
     Dosage: 200 MG, 300-350 DF,

REACTIONS (8)
  - Suicide attempt [Unknown]
  - Loss of consciousness [Recovered/Resolved]
  - Hypotension [Recovered/Resolved]
  - Hyperlactacidaemia [Unknown]
  - Depressed level of consciousness [Unknown]
  - Metabolic acidosis [Unknown]
  - Vomiting [Unknown]
  - Overdose [Unknown]
